FAERS Safety Report 6530707-1 (Version None)
Quarter: 2010Q1

REPORT INFORMATION
  Report Type: 
  Country: None (occurrence: None)
  Receive Date: 20100108
  Receipt Date: 20081207
  Transmission Date: 20100710
  Serious: No
  Sender: FDA-Public Use
  Company Number: A0759326A

PATIENT
  Sex: Female

DRUGS (2)
  1. LOVAZA [Suspect]
     Indication: DRUG USE FOR UNKNOWN INDICATION
     Route: 048
  2. PAIN MEDICATION [Concomitant]

REACTIONS (1)
  - ARTHRALGIA [None]
